FAERS Safety Report 10436432 (Version 1)
Quarter: 2014Q3

REPORT INFORMATION
  Report Type: Spontaneous
  Country: US (occurrence: None)
  Receive Date: 20140904
  Receipt Date: 20140904
  Transmission Date: 20150326
  Serious: Yes (Hospitalization)
  Sender: FDA-Public Use
  Company Number: AEGR000704

PATIENT
  Age: 78 Year
  Sex: Female
  Weight: 74.8 kg

DRUGS (10)
  1. JUXTAPID [Suspect]
     Active Substance: LOMITAPIDE MESYLATE
     Indication: TYPE IIA HYPERLIPIDAEMIA
     Route: 048
     Dates: start: 201403, end: 20140805
  2. SYNTHROID [Concomitant]
     Active Substance: LEVOTHYROXINE SODIUM
  3. TRADJENTA (LINAGLIPTIN) [Concomitant]
  4. ASPIRIN (ACETYLSALICYLIC ACID) [Concomitant]
     Active Substance: ASPIRIN
  5. LOVAZA [Concomitant]
     Active Substance: OMEGA-3-ACID ETHYL ESTERS
  6. NORVASC [Concomitant]
     Active Substance: AMLODIPINE BESYLATE
  7. INSULIN (INSULIN PORCINE) [Concomitant]
  8. SENSIPAR (CINACALCET HYDROCHLORIDE) [Concomitant]
  9. PLAVIX [Concomitant]
     Active Substance: CLOPIDOGREL BISULFATE
  10. COREG [Concomitant]
     Active Substance: CARVEDILOL

REACTIONS (4)
  - Haemoglobin decreased [None]
  - Abasia [None]
  - Mobility decreased [None]
  - Dyspnoea [None]

NARRATIVE: CASE EVENT DATE: 20140728
